FAERS Safety Report 7297554-7 (Version None)
Quarter: 2011Q1

REPORT INFORMATION
  Report Type: 
  Country: None (occurrence: None)
  Receive Date: 20110216
  Receipt Date: 20110104
  Transmission Date: 20110831
  Serious: Yes (Other)
  Sender: FDA-Public Use
  Company Number: US-BAXTER-2011BH000255

PATIENT
  Sex: Male

DRUGS (7)
  1. HEPARIN SODIUM INJECTION [Suspect]
     Indication: PRODUCT USED FOR UNKNOWN INDICATION
     Route: 065
     Dates: start: 20081101, end: 20081101
  2. HEPARIN SODIUM INJECTION [Suspect]
     Route: 065
     Dates: start: 20081101, end: 20081101
  3. HEPARIN SODIUM INJECTION [Suspect]
     Route: 065
     Dates: start: 20081201, end: 20081201
  4. HEPARIN SODIUM INJECTION [Suspect]
     Route: 065
     Dates: start: 20081101, end: 20081101
  5. HEPARIN SODIUM INJECTION [Suspect]
     Route: 042
     Dates: start: 20081201, end: 20081201
  6. HEPARIN SODIUM INJECTION [Suspect]
     Route: 065
     Dates: start: 20081201, end: 20081201
  7. HEPARIN SODIUM INJECTION [Suspect]
     Route: 065
     Dates: start: 20081201, end: 20081202

REACTIONS (6)
  - CYANOSIS [None]
  - HEPARIN-INDUCED THROMBOCYTOPENIA [None]
  - GANGRENE [None]
  - EXTREMITY NECROSIS [None]
  - THROMBOSIS [None]
  - GRAFT THROMBOSIS [None]
